FAERS Safety Report 7651815-8 (Version None)
Quarter: 2011Q3

REPORT INFORMATION
  Report Type: 
  Country: None (occurrence: None)
  Receive Date: 20110803
  Receipt Date: 20110721
  Transmission Date: 20111222
  Serious: Yes (Congenital Anomaly, Other)
  Sender: FDA-Public Use
  Company Number: CH-BRISTOL-MYERS SQUIBB COMPANY-15938061

PATIENT

DRUGS (1)
  1. EFAVIRENZ [Suspect]
     Route: 064

REACTIONS (1)
  - CONGENITAL ANOMALY [None]
